FAERS Safety Report 10574289 (Version 1)
Quarter: 2014Q4

REPORT INFORMATION
  Report Type: Spontaneous
  Country: US (occurrence: US)
  Receive Date: 20141110
  Receipt Date: 20141110
  Transmission Date: 20150529
  Serious: No
  Sender: FDA-Public Use
  Company Number: US-GALDERMA-US14003285

PATIENT
  Sex: Female

DRUGS (1)
  1. CLOBEX [Suspect]
     Active Substance: CLOBETASOL PROPIONATE
     Dosage: 0.05%
     Route: 061

REACTIONS (1)
  - Seborrhoea [Unknown]
